FAERS Safety Report 10905246 (Version 1)
Quarter: 2015Q1

REPORT INFORMATION
  Report Type: Spontaneous
  Country: US (occurrence: None)
  Receive Date: 20150309
  Receipt Date: 20150309
  Transmission Date: 20150721
  Serious: Yes (Life-Threatening)
  Sender: FDA-Public Use
  Company Number: None

PATIENT
  Age: 29 Year
  Sex: Female

DRUGS (1)
  1. PARAGARD T 380A [Suspect]
     Active Substance: COPPER

REACTIONS (6)
  - Retained placenta or membranes [None]
  - Pregnancy with contraceptive device [None]
  - Ectopic pregnancy [None]
  - Thrombosis [None]
  - Human chorionic gonadotropin increased [None]
  - Fallopian tube disorder [None]

NARRATIVE: CASE EVENT DATE: 20140806
